FAERS Safety Report 4993324-0 (Version None)
Quarter: 2006Q2

REPORT INFORMATION
  Report Type: 
  Country: None (occurrence: None)
  Receive Date: 20060505
  Receipt Date: 20060424
  Transmission Date: 20061013
  Serious: Yes (Hospitalization)
  Sender: FDA-Public Use
  Company Number: 2006CG00744

PATIENT
  Age: 3 Year
  Sex: Female
  Weight: 11 kg

DRUGS (7)
  1. PULMICORT [Suspect]
     Indication: ASTHMA
     Route: 055
  2. BACTRIM [Concomitant]
     Indication: ANTIBIOTIC PROPHYLAXIS
     Route: 048
  3. ORELOX [Concomitant]
     Indication: ANTIBIOTIC PROPHYLAXIS
  4. JOSACINE [Concomitant]
     Indication: ANTIBIOTIC PROPHYLAXIS
  5. VENTOLIN [Concomitant]
     Indication: ASTHMA
     Route: 055
  6. SEREVENT [Concomitant]
     Indication: ASTHMA
     Route: 055
  7. MICROPAKINE [Concomitant]
     Indication: EPILEPSY
     Route: 048

REACTIONS (5)
  - CANDIDIASIS [None]
  - GINGIVITIS [None]
  - LOCALISED INFECTION [None]
  - STOMATITIS [None]
  - VARICELLA [None]
